FAERS Safety Report 7785839-7 (Version None)
Quarter: 2011Q3

REPORT INFORMATION
  Report Type: 
  Country: None (occurrence: None)
  Receive Date: 20110929
  Receipt Date: 20110920
  Transmission Date: 20111222
  Serious: Yes (Hospitalization, Other)
  Sender: FDA-Public Use
  Company Number: US-BAYER-2011-091099

PATIENT
  Age: 22 Year
  Sex: Female
  Weight: 120.18 kg

DRUGS (6)
  1. YAZ [Suspect]
     Indication: ORAL CONTRACEPTION
     Dosage: UNK
     Dates: start: 20010101, end: 20090101
  2. MEDROL [Concomitant]
  3. VICODIN [Concomitant]
     Dosage: UNK UNK, PRN
     Route: 048
  4. CALCIUM CARBONATE [Concomitant]
     Dosage: 500 MG, PRN
     Route: 048
  5. IMODIUM MULTI-SYMPTOM RELIEF [Concomitant]
     Dosage: 2 MG, UNK
     Route: 048
  6. MOTRIN [Concomitant]

REACTIONS (4)
  - ABDOMINAL PAIN [None]
  - BACK PAIN [None]
  - CHOLECYSTITIS CHRONIC [None]
  - CHOLELITHIASIS [None]
